FAERS Safety Report 9564621 (Version 4)
Quarter: 2016Q4

REPORT INFORMATION
  Report Type: Spontaneous
  Country: US (occurrence: US)
  Receive Date: 20130930
  Receipt Date: 20161114
  Transmission Date: 20170207
  Serious: No
  Sender: FDA-Public Use
  Company Number: US-PFIZER INC-2013276771

PATIENT
  Age: 56 Year
  Sex: Female
  Weight: 86 kg

DRUGS (28)
  1. BACLOFEN. [Concomitant]
     Active Substance: BACLOFEN
     Indication: MUSCLE SPASMS
     Dosage: 20 MG TAKE 1/2 TABLET (10 MG) EVERY DAY AS NEEDED
     Route: 048
  2. MIRALAX [Concomitant]
     Active Substance: POLYETHYLENE GLYCOL 3350
     Dosage: 17 G, 1X/DAY
     Route: 048
  3. CALCIUM [Concomitant]
     Active Substance: CALCIUM
     Dosage: 1000 IU, UNK
  4. LYRICA [Suspect]
     Active Substance: PREGABALIN
     Indication: NEUROPATHY PERIPHERAL
     Dosage: 150 MG, 2X/DAY
     Route: 048
     Dates: start: 2006
  5. ADDERALL XR [Concomitant]
     Active Substance: AMPHETAMINE ASPARTATE\AMPHETAMINE SULFATE\DEXTROAMPHETAMINE SACCHARATE\DEXTROAMPHETAMINE SULFATE
     Dosage: 30 MG, DAILY
     Route: 048
  6. CRANBERRY. [Concomitant]
     Active Substance: CRANBERRY
     Dosage: 3000 MG, DAILY
  7. LYRICA [Suspect]
     Active Substance: PREGABALIN
     Indication: POLYNEUROPATHY
     Dosage: 500 MG, UNK
     Route: 048
     Dates: start: 2009
  8. LYRICA [Suspect]
     Active Substance: PREGABALIN
     Dosage: 300 MG, DAILY (ONE CAPSULE ONCE DAILY)
     Route: 048
  9. CALCIUM CARBONATE, VITAMIN D NOS [Concomitant]
     Dosage: 2400 MG, 1X/DAY (1200 MG TWO CHEWS)
     Route: 048
  10. VITAMIN C [Concomitant]
     Active Substance: ASCORBIC ACID
     Dosage: 1000 MG, DAILY
  11. MAGONATE [Concomitant]
     Active Substance: MAGNESIUM CARBONATE
     Dosage: UNK
  12. BIESTROGEN [Concomitant]
     Dosage: 1.25 MG, UNK
     Route: 060
  13. ESTRIOL [Concomitant]
     Active Substance: ESTRIOL
     Dosage: 1 MG, UNK
  14. OMEGA 3-6-9 [Concomitant]
     Active Substance: FISH OIL
     Dosage: 1200 MG, DAILY
  15. PRENATAL VITAMINS [Concomitant]
     Active Substance: VITAMINS
     Dosage: 1 DF, DAILY
     Route: 048
  16. ACIDOPHILUS [Concomitant]
     Active Substance: LACTOBACILLUS ACIDOPHILUS
     Dosage: 1 DF, DAILY
     Route: 048
  17. PROGESTERON [Concomitant]
     Active Substance: PROGESTERONE
     Dosage: 200 MG, 2X/DAY
     Route: 048
  18. VITAMIN D [Concomitant]
     Active Substance: CHOLECALCIFEROL
     Dosage: UNK
  19. MAGNESIUM [Concomitant]
     Active Substance: MAGNESIUM
     Dosage: 30 MG, 2 TO 3 TABLETS AT NIGHT
  20. TURMERIC CURCUMIN [Concomitant]
     Active Substance: TURMERIC
     Dosage: UNK
  21. ALEVE [Concomitant]
     Active Substance: NAPROXEN SODIUM
     Dosage: 220 MG, 1X/DAY (EVERY EVENING)
     Route: 048
  22. OXYBUTYNIN CHLORIDE. [Concomitant]
     Active Substance: OXYBUTYNIN CHLORIDE
     Dosage: 5 MG, 1X/DAY
     Route: 048
  23. PROZAC [Concomitant]
     Active Substance: FLUOXETINE HYDROCHLORIDE
     Dosage: 40 MG, 1X/DAY
     Route: 048
  24. TYLENOL EXTRA STRENGTH [Concomitant]
     Active Substance: ACETAMINOPHEN
     Dosage: 500 MG, 4X/DAY, EVERY 6 HOURS AS NEEDED
     Route: 048
  25. MELATONIN [Concomitant]
     Active Substance: MELATONIN
     Dosage: UNK
  26. MULTI VITAMIN [Concomitant]
     Active Substance: VITAMINS
  27. LYRICA [Suspect]
     Active Substance: PREGABALIN
     Indication: NEURALGIA
     Dosage: 150 MG, 1X/DAY (ONE CAPSULE DAILY)
     Route: 048
  28. DITROPAN [Concomitant]
     Active Substance: OXYBUTYNIN CHLORIDE
     Dosage: UNK

REACTIONS (5)
  - Abdominal distension [Recovered/Resolved]
  - Pain [Not Recovered/Not Resolved]
  - Weight increased [Unknown]
  - Somnolence [Not Recovered/Not Resolved]
  - Increased appetite [Recovered/Resolved]

NARRATIVE: CASE EVENT DATE: 2006
